FAERS Safety Report 7729763-4 (Version None)
Quarter: 2011Q3

REPORT INFORMATION
  Report Type: 
  Country: None (occurrence: None)
  Receive Date: 20110901
  Receipt Date: 20110901
  Transmission Date: 20111222
  Serious: Yes (Life-Threatening)
  Sender: FDA-Public Use
  Company Number: None

PATIENT
  Age: 68 Year
  Sex: Male
  Weight: 92.9874 kg

DRUGS (2)
  1. METOPROLOL SUCCINATE [Suspect]
     Indication: CARDIAC DISORDER
     Dosage: 1/2 PILL TWICE A DAY WITH WATER  I USED BENYDRIL LIPS SWEL
     Dates: start: 19890101
  2. VASERETIC [Suspect]

REACTIONS (4)
  - BLOOD PRESSURE DECREASED [None]
  - OEDEMA MOUTH [None]
  - URTICARIA [None]
  - PRODUCT SUBSTITUTION ISSUE [None]
